FAERS Safety Report 24320587 (Version 2)
Quarter: 2024Q4

REPORT INFORMATION
  Report Type: Spontaneous
  Country: US (occurrence: US)
  Receive Date: 20240915
  Receipt Date: 20241005
  Transmission Date: 20250114
  Serious: Yes (Other)
  Sender: AUROBINDO
  Company Number: US-AUROBINDO-AUR-APL-2024-044516

PATIENT
  Sex: Female

DRUGS (2)
  1. DOXYCYCLINE [Suspect]
     Active Substance: DOXYCYCLINE
     Indication: Dermatitis acneiform
     Dosage: UNK (DOXYCYCLINE FOR 6 AND 7 MONTHS)
     Route: 048
  2. ISOTRETINOIN [Suspect]
     Active Substance: ISOTRETINOIN
     Indication: Dermatitis acneiform
     Dosage: 0.2-0.3 MG/KG/DAY ROUNDED PER PILL SIZE
     Route: 048

REACTIONS (2)
  - Rebound effect [Unknown]
  - Xerosis [Unknown]
